FAERS Safety Report 8074075-5 (Version None)
Quarter: 2012Q1

REPORT INFORMATION
  Report Type: 
  Country: None (occurrence: None)
  Receive Date: 20120126
  Receipt Date: 20120120
  Transmission Date: 20120608
  Serious: Yes (Death, Hospitalization, Disabling, Other)
  Sender: FDA-Public Use
  Company Number: US-CELGENEUS-163-21880-11091932

PATIENT
  Sex: Male

DRUGS (4)
  1. RAPAMUNE [Concomitant]
     Route: 065
     Dates: start: 20060525, end: 20110614
  2. RITUXAN [Concomitant]
     Dates: start: 20110624, end: 20110722
  3. REVLIMID [Suspect]
     Dosage: 2.5 MILLIGRAM
     Route: 048
     Dates: start: 20110720, end: 20110819
  4. REVLIMID [Suspect]
     Indication: MANTLE CELL LYMPHOMA
     Dosage: 5 MILLIGRAM
     Route: 048
     Dates: start: 20110707

REACTIONS (3)
  - DIARRHOEA [None]
  - MANTLE CELL LYMPHOMA [None]
  - FALL [None]
